FAERS Safety Report 6186706-5 (Version None)
Quarter: 2009Q2

REPORT INFORMATION
  Report Type: 
  Country: None (occurrence: None)
  Receive Date: 20090508
  Receipt Date: 20090428
  Transmission Date: 20091009
  Serious: Yes (Other)
  Sender: FDA-Public Use
  Company Number: SPV1-2009-00825

PATIENT
  Age: 86 Year
  Sex: Female
  Weight: 47.6 kg

DRUGS (6)
  1. PENTASA [Suspect]
     Indication: INTESTINAL FUNCTIONAL DISORDER
     Dosage: 1000MG, 2X/DAY:BID, ORAL; 1000MG, 2X/DAY:BID, ORAL
     Route: 048
     Dates: start: 19940101, end: 20090201
  2. PENTASA [Suspect]
     Indication: INTESTINAL FUNCTIONAL DISORDER
     Dosage: 1000MG, 2X/DAY:BID, ORAL; 1000MG, 2X/DAY:BID, ORAL
     Route: 048
     Dates: start: 20090425
  3. FEXOFENADINE HCL [Concomitant]
  4. LAMICTAL [Concomitant]
  5. HYDROCHLOROTHIAZIDE [Concomitant]
  6. LORAZEPAM [Concomitant]

REACTIONS (10)
  - ALOPECIA [None]
  - BLOOD POTASSIUM DECREASED [None]
  - CHOLELITHIASIS [None]
  - CONSTIPATION [None]
  - CROHN'S DISEASE [None]
  - GASTROOESOPHAGEAL REFLUX DISEASE [None]
  - HYPOTHYROIDISM [None]
  - PARKINSON'S DISEASE [None]
  - RESORPTION BONE INCREASED [None]
  - WEIGHT DECREASED [None]
